FAERS Safety Report 7338387-2 (Version None)
Quarter: 2011Q1

REPORT INFORMATION
  Report Type: 
  Country: None (occurrence: None)
  Receive Date: 20110303
  Receipt Date: 20110303
  Transmission Date: 20110831
  Serious: Yes (Other)
  Sender: FDA-Public Use
  Company Number: None

PATIENT
  Age: 68 Year
  Sex: Female
  Weight: 73.9363 kg

DRUGS (1)
  1. ZONISAMIDE [Suspect]
     Indication: BIPOLAR DISORDER
     Dosage: 100 MG 2X DAY
     Dates: start: 20110103, end: 20110210

REACTIONS (7)
  - APHASIA [None]
  - FEELING COLD [None]
  - NASOPHARYNGITIS [None]
  - CONFUSIONAL STATE [None]
  - FRUSTRATION [None]
  - DYSGEUSIA [None]
  - DISTURBANCE IN ATTENTION [None]
